FAERS Safety Report 23656967 (Version 1)
Quarter: 2024Q1

REPORT INFORMATION
  Report Type: Report from Study
  Country: US (occurrence: US)
  Receive Date: 20240321
  Receipt Date: 20240321
  Transmission Date: 20240410
  Serious: Yes (Other)
  Sender: FDA-Public Use
  Company Number: US-ABBVIE-5683520

PATIENT
  Age: 57 Year
  Sex: Female

DRUGS (2)
  1. SKYRIZI [Suspect]
     Active Substance: RISANKIZUMAB-RZAA
     Indication: Psoriatic arthropathy
     Dosage: FORM STRENGTH: 150 MILLIGRAM WEEK 0
     Route: 058
     Dates: start: 20231215, end: 20231215
  2. SKYRIZI [Suspect]
     Active Substance: RISANKIZUMAB-RZAA
     Dosage: FORM STRENGTH: 150 MILLIGRAM WEEK 4
     Route: 058
     Dates: start: 202401

REACTIONS (7)
  - Systemic lupus erythematosus rash [Not Recovered/Not Resolved]
  - Night sweats [Unknown]
  - Grip strength decreased [Unknown]
  - Loss of personal independence in daily activities [Not Recovered/Not Resolved]
  - Inflammation [Unknown]
  - Mobility decreased [Not Recovered/Not Resolved]
  - Drug ineffective [Unknown]

NARRATIVE: CASE EVENT DATE: 20240301
